FAERS Safety Report 16339163 (Version 3)
Quarter: 2019Q3

REPORT INFORMATION
  Report Type: Spontaneous
  Country: US (occurrence: US)
  Receive Date: 20190521
  Receipt Date: 20190705
  Transmission Date: 20191004
  Serious: Yes (Other)
  Sender: FDA-Public Use
  Company Number: US-PFIZER INC-2017516681

PATIENT
  Age: 68 Year
  Sex: Male
  Weight: 113 kg

DRUGS (12)
  1. ALLOPURINOL. [Concomitant]
     Active Substance: ALLOPURINOL
     Indication: GOUT
     Dosage: 100 MG, DAILY
     Route: 048
  2. OXYCODONE HYDROCHLORIDE. [Concomitant]
     Active Substance: OXYCODONE HYDROCHLORIDE
     Indication: PAIN
     Dosage: 30 MG, UNK (EVERY 6 HOURS)
     Route: 048
  3. SERTRALINE HCL [Concomitant]
     Active Substance: SERTRALINE HYDROCHLORIDE
     Indication: DEPRESSION
     Dosage: 100 MG, DAILY [TAKE 1 TABLET BY ORAL ROUTE EVERY DAY]
     Route: 048
  4. OXYCODONE [Concomitant]
     Active Substance: OXYCODONE
     Indication: PAIN
     Dosage: (30MG, TABLET, BY MOUTH, THREE DAILY FOR 20 DAYS AND THEN THE REST OF THE DAYS HE TAKE 2 DAILY)
  5. LYRICA [Suspect]
     Active Substance: PREGABALIN
     Indication: POLYNEUROPATHY
     Dosage: 100 MG, DAILY
  6. NORCO [Concomitant]
     Active Substance: ACETAMINOPHEN\HYDROCODONE BITARTRATE
     Indication: BREAKTHROUGH PAIN
     Dosage: 1 DF, AS NEEDED [HYDROCODONE BITARTRATE: 10 MG, PARACETAMOL: 325 MG, 1 TABLET ORAL ROUTE QD] (10/325
     Route: 048
  7. FLOMAX [Concomitant]
     Active Substance: TAMSULOSIN HYDROCHLORIDE
     Dosage: 0.4 MG, UNK [EVERY DAY 1/2 HOUR FOLLOWING THE SAME MEAL EACH DAY]
     Route: 048
  8. BACLOFEN. [Concomitant]
     Active Substance: BACLOFEN
     Indication: MUSCLE SPASMS
     Dosage: 10 MG, AS NEEDED [1 TABLET BY ORAL ROUTE 2 TIMES EVERY DAY PRN ]
     Route: 048
  9. VITAMIN B12 [Concomitant]
     Active Substance: CYANOCOBALAMIN
     Dosage: 1000 UG, DAILY [TAKE 1 BY ORAL ROUTE EVERY DAY]
     Route: 048
  10. LEXAPRO [Concomitant]
     Active Substance: ESCITALOPRAM OXALATE
     Indication: ANXIETY
     Dosage: 20 MG, DAILY[TAKE 1 TABLET BY ORAL ROUTE EVERY DAY]
     Route: 048
  11. LYRICA [Suspect]
     Active Substance: PREGABALIN
     Indication: NEUROPATHY PERIPHERAL
     Dosage: 200 MG, 3X/DAY (THREE TIMES DAILY)
     Route: 048
  12. BUSPIRONE HCL [Concomitant]
     Active Substance: BUSPIRONE HYDROCHLORIDE
     Indication: ANXIETY
     Dosage: 10 MG, AS NEEDED [TAKE 1 TABLET BY ORAL ROUTE 2 TIMES EVERY DAY PRN]
     Route: 048

REACTIONS (6)
  - Limb injury [Unknown]
  - Product use issue [Unknown]
  - Gout [Unknown]
  - Loss of consciousness [Unknown]
  - Fall [Not Recovered/Not Resolved]
  - Off label use [Unknown]
